FAERS Safety Report 25958887 (Version 1)
Quarter: 2025Q4

REPORT INFORMATION
  Report Type: Report from Study
  Country: US (occurrence: US)
  Receive Date: 20251025
  Receipt Date: 20251025
  Transmission Date: 20260118
  Serious: Yes (Other)
  Sender: ABBVIE
  Company Number: US-ABBVIE-22K-163-4379205-00

PATIENT
  Age: 75 Year
  Sex: Male

DRUGS (10)
  1. IMBRUVICA [Suspect]
     Active Substance: IBRUTINIB
     Indication: Chronic lymphocytic leukaemia
     Route: 048
     Dates: start: 20200101
  2. IMBRUVICA [Suspect]
     Active Substance: IBRUTINIB
     Indication: Chronic lymphocytic leukaemia
     Dates: start: 2019
  3. IMBRUVICA [Suspect]
     Active Substance: IBRUTINIB
     Indication: Chronic lymphocytic leukaemia
     Route: 048
     Dates: start: 202509
  4. PFIZER-BIONTECH COVID-19 VACCINE [Concomitant]
     Active Substance: TOZINAMERAN
     Indication: COVID-19 immunisation
     Dosage: FIRST DOSE
     Route: 030
     Dates: start: 2021, end: 2021
  5. PFIZER-BIONTECH COVID-19 VACCINE [Concomitant]
     Active Substance: TOZINAMERAN
     Indication: COVID-19 immunisation
     Dosage: SECOND DOSE
     Route: 030
     Dates: start: 2021, end: 2021
  6. PFIZER-BIONTECH COVID-19 VACCINE [Concomitant]
     Active Substance: TOZINAMERAN
     Indication: COVID-19 immunisation
     Dosage: THIRD DOSE
     Route: 030
     Dates: start: 202110, end: 202110
  7. BRUKINSA [Concomitant]
     Active Substance: ZANUBRUTINIB
     Indication: Product used for unknown indication
  8. RITUXIMAB [Concomitant]
     Active Substance: RITUXIMAB
     Indication: Product used for unknown indication
     Dates: start: 202509
  9. ALLOPURINOL [Concomitant]
     Active Substance: ALLOPURINOL
     Indication: Product used for unknown indication
     Dosage: 300 OR 400 MILLIGRAMS TWICE A DAY ALONG WITH AN ORANGE PILL
  10. ORANGE [Concomitant]
     Active Substance: ORANGE
     Indication: Product used for unknown indication
     Dosage: PILL

REACTIONS (19)
  - Cataract [Unknown]
  - White blood cell count increased [Recovering/Resolving]
  - Anxiety [Not Recovered/Not Resolved]
  - Rash [Unknown]
  - Joint injury [Unknown]
  - Unevaluable event [Unknown]
  - Night sweats [Unknown]
  - Diarrhoea [Unknown]
  - Nervousness [Unknown]
  - Eye pruritus [Unknown]
  - Throat irritation [Unknown]
  - Nasal pruritus [Unknown]
  - Lymphocyte count increased [Unknown]
  - Neoplasm malignant [Unknown]
  - Arthralgia [Recovering/Resolving]
  - Spinal disorder [Unknown]
  - Cardiac disorder [Unknown]
  - Platelet count abnormal [Unknown]
  - Investigation abnormal [Unknown]

NARRATIVE: CASE EVENT DATE: 20200101
